FAERS Safety Report 10078652 (Version 2)
Quarter: 2014Q2

REPORT INFORMATION
  Report Type: Spontaneous
  Country: US (occurrence: US)
  Receive Date: 20140415
  Receipt Date: 20140428
  Transmission Date: 20141212
  Serious: Yes (Other)
  Sender: FDA-Public Use
  Company Number: US-BEH-2014041671

PATIENT
  Age: 53 Year
  Sex: Male
  Weight: 99 kg

DRUGS (3)
  1. HIZENTRA [Suspect]
     Indication: IMMUNODEFICIENCY COMMON VARIABLE
     Dosage: ADMINISTERED DEC-2013;DISCONTINUED
     Route: 058
     Dates: start: 20131213
  2. FLAX SEED OIL [Concomitant]
     Route: 048
  3. MULTIVITAMINS [Concomitant]
     Route: 048

REACTIONS (4)
  - Renal tubular disorder [Recovering/Resolving]
  - Renal injury [Recovering/Resolving]
  - Anaemia [Recovering/Resolving]
  - Fatigue [Unknown]
